FAERS Safety Report 4525034-8 (Version None)
Quarter: 2004Q4

REPORT INFORMATION
  Report Type: 
  Country: None (occurrence: None)
  Receive Date: 20041213
  Receipt Date: 20041203
  Transmission Date: 20050328
  Serious: Yes (Life-Threatening, Hospitalization)
  Sender: FDA-Public Use
  Company Number: JP-BOEHRINGER INGELHEIM PHARMMACEUTICALS, INC.-2004-BP-13187NB

PATIENT
  Sex: Male

DRUGS (8)
  1. MICARDIS [Suspect]
     Indication: HYPERTENSION
     Route: 048
     Dates: start: 20041023, end: 20041118
  2. PL [Suspect]
     Route: 048
     Dates: start: 20041116, end: 20041118
  3. MEDICON [Suspect]
     Route: 048
     Dates: start: 20041116, end: 20041118
  4. BRUFEN [Suspect]
     Route: 048
     Dates: start: 20041116, end: 20041118
  5. ALMYLAR [Concomitant]
     Route: 048
     Dates: end: 20041118
  6. SOLANAX [Concomitant]
     Route: 048
     Dates: end: 20041118
  7. ADALAT [Concomitant]
     Route: 048
     Dates: end: 20041118
  8. ASPENON [Concomitant]
     Route: 048
     Dates: end: 20041118

REACTIONS (2)
  - FATIGUE [None]
  - JAUNDICE [None]
